FAERS Safety Report 4837537-7 (Version None)
Quarter: 2005Q4

REPORT INFORMATION
  Report Type: 
  Country: None (occurrence: None)
  Receive Date: 20051123
  Receipt Date: 20051123
  Transmission Date: 20060501
  Serious: Yes (Hospitalization)
  Sender: FDA-Public Use
  Company Number: None

PATIENT
  Age: 67 Year
  Sex: Male
  Weight: 67.6 kg

DRUGS (9)
  1. PHENYTOIN [Suspect]
     Indication: CONVULSION
     Dosage: 330MG, 330MG QH, ORAL
     Route: 048
  2. POTASSIUM CHLORIDE [Concomitant]
  3. ALLOPURINOL [Concomitant]
  4. HYDROCHLOROTHIAZIDE [Concomitant]
  5. ASPIRIN [Concomitant]
  6. COLCHICINE [Concomitant]
  7. METOPROLOL TARTRATE [Concomitant]
  8. THIAMINE HCL [Concomitant]
  9. ASPIRIN / DIPYRIDAMOLE [Concomitant]

REACTIONS (1)
  - COORDINATION ABNORMAL [None]
